FAERS Safety Report 4360651-X (Version None)
Quarter: 2004Q2

REPORT INFORMATION
  Report Type: 
  Country: None (occurrence: None)
  Receive Date: 20040518
  Receipt Date: 20040518
  Transmission Date: 20050107
  Serious: Yes (Hospitalization)
  Sender: FDA-Public Use
  Company Number: None

PATIENT
  Sex: Female

DRUGS (3)
  1. TAMOXIFEN CITRATE [Suspect]
     Indication: BREAST CANCER
     Dosage: 20 MG PO QD
     Route: 048
  2. METOPROLOL TARTRATE [Concomitant]
  3. ASPIRIN [Concomitant]

REACTIONS (4)
  - PAIN IN EXTREMITY [None]
  - SKIN DISCOLOURATION [None]
  - SUBCLAVIAN VEIN THROMBOSIS [None]
  - SWELLING [None]
